FAERS Safety Report 21083369 (Version 1)
Quarter: 2022Q3

REPORT INFORMATION
  Report Type: Spontaneous
  Country: CN (occurrence: CN)
  Receive Date: 20220714
  Receipt Date: 20220714
  Transmission Date: 20221027
  Serious: Yes (Other)
  Sender: FDA-Public Use
  Company Number: CN-PFIZER INC-PV202200021462

PATIENT
  Age: 81 Year
  Sex: Female
  Weight: 65 kg

DRUGS (3)
  1. METHYLPREDNISOLONE SODIUM SUCCINATE [Suspect]
     Active Substance: METHYLPREDNISOLONE SODIUM SUCCINATE
     Indication: Hormone therapy
     Dosage: 500 MG, 1X/DAY
     Route: 041
     Dates: start: 20220626, end: 20220702
  2. METHYLPREDNISOLONE SODIUM SUCCINATE [Suspect]
     Active Substance: METHYLPREDNISOLONE SODIUM SUCCINATE
     Indication: Chronic inflammatory demyelinating polyradiculoneuropathy
  3. SODIUM CHLORIDE [Concomitant]
     Active Substance: SODIUM CHLORIDE
     Indication: Vehicle solution use
     Dosage: 250 ML, 1X/DAY
     Route: 041
     Dates: start: 20220626, end: 20220702

REACTIONS (7)
  - Erythema [Recovering/Resolving]
  - Skin swelling [Recovering/Resolving]
  - Rash [Recovering/Resolving]
  - Purulent discharge [Recovering/Resolving]
  - Pruritus [Recovering/Resolving]
  - White blood cell count increased [Unknown]
  - C-reactive protein increased [Unknown]

NARRATIVE: CASE EVENT DATE: 20220629
